FAERS Safety Report 20754987 (Version 2)
Quarter: 2022Q2

REPORT INFORMATION
  Report Type: Spontaneous
  Country: JP (occurrence: JP)
  Receive Date: 20220427
  Receipt Date: 20220601
  Transmission Date: 20220720
  Serious: Yes (Hospitalization, Other)
  Sender: FDA-Public Use
  Company Number: JP-BEH-2022143956

PATIENT
  Age: 29 Year
  Sex: Male
  Weight: 60 kg

DRUGS (2)
  1. HIZENTRA [Suspect]
     Active Substance: HUMAN IMMUNOGLOBULIN G
     Indication: Chronic inflammatory demyelinating polyradiculoneuropathy
     Dosage: 24 GRAM, QW
     Route: 058
     Dates: start: 20220310, end: 20220405
  2. HIZENTRA [Suspect]
     Active Substance: HUMAN IMMUNOGLOBULIN G
     Dosage: 24 GRAM, QW
     Route: 058
     Dates: start: 20220310, end: 20220405

REACTIONS (5)
  - Chronic inflammatory demyelinating polyradiculoneuropathy [Recovered/Resolved]
  - Drug ineffective [Unknown]
  - Muscular weakness [Recovered/Resolved]
  - Gait disturbance [Recovered/Resolved]
  - Grip strength decreased [Recovered/Resolved]

NARRATIVE: CASE EVENT DATE: 20220405
